FAERS Safety Report 5923268-9 (Version None)
Quarter: 2008Q4

REPORT INFORMATION
  Report Type: 
  Country: None (occurrence: None)
  Receive Date: 20081015
  Receipt Date: 20081006
  Transmission Date: 20090506
  Serious: Yes (Hospitalization)
  Sender: FDA-Public Use
  Company Number: 2008SP020369

PATIENT
  Age: 33 Year
  Sex: Female

DRUGS (28)
  1. PEG-INTRON [Suspect]
     Indication: HEPATITIS C
     Dates: start: 20071011, end: 20080709
  2. RIBAVIRIN [Suspect]
     Indication: DRUG USE FOR UNKNOWN INDICATION
     Dates: start: 20071010, end: 20080709
  3. PROCRIT [Suspect]
     Indication: ANAEMIA
     Dosage: SEE IMAGE
     Route: 058
     Dates: start: 20071213, end: 20080221
  4. PROCRIT [Suspect]
     Indication: ANAEMIA
     Dosage: SEE IMAGE
     Route: 058
     Dates: start: 20080221, end: 20080327
  5. PROCRIT [Suspect]
     Indication: ANAEMIA
     Dosage: SEE IMAGE
     Route: 058
     Dates: start: 20080327, end: 20080612
  6. PROCRIT [Suspect]
     Indication: ANAEMIA
     Dosage: SEE IMAGE
     Route: 058
     Dates: start: 20080612, end: 20080714
  7. MYCOPHENOLATE MOFETIL [Suspect]
     Indication: DRUG USE FOR UNKNOWN INDICATION
     Dates: start: 20070517, end: 20080425
  8. TACROLIMUS [Suspect]
     Indication: IMMUNOSUPPRESSION
     Dates: start: 20070517
  9. CIPRO [Concomitant]
  10. DIPHENHYDRAMINE HCL [Concomitant]
  11. HYDROCHLORIDE [Concomitant]
  12. PROMETHAZINE [Concomitant]
  13. CIPROFLOXACIN [Concomitant]
  14. HYDROCHLORIDE [Concomitant]
  15. CITALOPRAM HYDRORROMIDE [Concomitant]
  16. METOCLOPRAMIDE [Concomitant]
  17. PIPERACILLIN W/TAZOSACTAM [Concomitant]
  18. RANITIDINE [Concomitant]
  19. VANCOMYCIN HYDROCHLORIDE [Concomitant]
  20. ACETAMINOPHEN [Concomitant]
  21. VALGANCICLOVIR HCL [Concomitant]
  22. ESOMEPRAZOLE MAGNESIUM [Concomitant]
  23. MAGNESIUM OXIDE [Concomitant]
  24. CELEXA [Concomitant]
  25. REGLAN [Concomitant]
  26. ZOSYN [Concomitant]
  27. BENADRYL [Concomitant]
  28. PHENERGAN [Concomitant]

REACTIONS (6)
  - ACTIVATED PARTIAL THROMBOPLASTIN TIME PROLONGED [None]
  - APLASIA PURE RED CELL [None]
  - HEPATIC FAILURE [None]
  - IMMUNOSUPPRESSION [None]
  - KLEBSIELLA SEPSIS [None]
  - PROTHROMBIN TIME PROLONGED [None]
